FAERS Safety Report 6233740-2 (Version None)
Quarter: 2009Q2

REPORT INFORMATION
  Report Type: 
  Country: None (occurrence: None)
  Receive Date: 20090618
  Receipt Date: 20070611
  Transmission Date: 20091009
  Serious: Yes (Hospitalization)
  Sender: FDA-Public Use
  Company Number: US-ASTRAZENECA-2006UW08415

PATIENT
  Age: 49 Year
  Sex: Female
  Weight: 97.5 kg

DRUGS (8)
  1. SEROQUEL [Suspect]
     Indication: BIPOLAR DISORDER
     Dosage: 100 MG - 300 MG
     Route: 048
     Dates: start: 20040719
  2. SEROQUEL [Suspect]
     Indication: DEPRESSION
     Dosage: 100 MG - 300 MG
     Route: 048
     Dates: start: 20040719
  3. SEROQUEL [Suspect]
     Route: 048
     Dates: start: 20040101
  4. SEROQUEL [Suspect]
     Route: 048
     Dates: start: 20040101
  5. ZOLOFT [Concomitant]
     Dosage: 50 MG - 200 MG
     Route: 048
     Dates: start: 20040210
  6. KLONOPIN [Concomitant]
     Dosage: 0.5 MG - 1MG
     Dates: start: 20040801
  7. NAPROXEN [Concomitant]
     Dates: start: 20040210
  8. CONCERTA [Concomitant]
     Route: 048
     Dates: start: 20050425

REACTIONS (2)
  - CARPAL TUNNEL SYNDROME [None]
  - HYPERGLYCAEMIA [None]
